FAERS Safety Report 23412721 (Version 1)
Quarter: 2024Q1

REPORT INFORMATION
  Report Type: Spontaneous
  Country: US (occurrence: US)
  Receive Date: 20240117
  Receipt Date: 20240117
  Transmission Date: 20240410
  Serious: No
  Sender: FDA-Public Use
  Company Number: US-NOVOPROD-1105134

PATIENT
  Sex: Female

DRUGS (1)
  1. OZEMPIC [Suspect]
     Active Substance: SEMAGLUTIDE
     Indication: Product used for unknown indication
     Dosage: 0.5 TO 1MG
     Route: 058
     Dates: start: 20220601, end: 20221231

REACTIONS (6)
  - Depression [Recovered/Resolved]
  - Anxiety [Unknown]
  - Ageusia [Unknown]
  - Urticaria [Recovered/Resolved]
  - Rash [Unknown]
  - Nausea [Unknown]
